FAERS Safety Report 21054165 (Version 2)
Quarter: 2022Q3

REPORT INFORMATION
  Report Type: Report from Study
  Country: AR (occurrence: AR)
  Receive Date: 20220707
  Receipt Date: 20220713
  Transmission Date: 20221027
  Serious: Yes (Hospitalization, Other)
  Sender: FDA-Public Use
  Company Number: AR-JNJFOC-20220561544

PATIENT
  Age: 63 Year
  Sex: Male
  Weight: 75 kg

DRUGS (24)
  1. STELARA [Suspect]
     Active Substance: USTEKINUMAB
     Indication: Crohn^s disease
     Route: 040
     Dates: start: 20210906, end: 20210907
  2. STELARA [Suspect]
     Active Substance: USTEKINUMAB
     Route: 058
     Dates: start: 20211101
  3. RISANKIZUMAB [Suspect]
     Active Substance: RISANKIZUMAB
     Indication: Crohn^s disease
     Route: 065
     Dates: start: 20210906
  4. COVID-19 VACCINE [Concomitant]
     Indication: COVID-19 prophylaxis
     Dates: start: 20210515, end: 20210515
  5. COVID-19 VACCINE [Concomitant]
     Dates: start: 20210914, end: 20210914
  6. COVID-19 VACCINE [Concomitant]
     Dates: start: 20220119, end: 20220119
  7. PANTOPRAZOLE [Concomitant]
     Active Substance: PANTOPRAZOLE
     Indication: Gastrointestinal disorder therapy
     Route: 048
  8. HYPROMELLOSES [Concomitant]
     Active Substance: HYPROMELLOSES
     Indication: Cataract
     Route: 047
     Dates: start: 20210813
  9. ERGOCALCIFEROL [Concomitant]
     Active Substance: ERGOCALCIFEROL
     Indication: Vitamin D deficiency
     Route: 048
     Dates: start: 20210826
  10. LEVOTHYROXINE [Concomitant]
     Active Substance: LEVOTHYROXINE
     Indication: Hypothyroidism
     Dates: start: 2015, end: 20211021
  11. LEVOTHYROXINE [Concomitant]
     Active Substance: LEVOTHYROXINE
     Dates: start: 20211022
  12. NEBIVOLOL [Concomitant]
     Active Substance: NEBIVOLOL
     Indication: Coronary artery disease
     Dates: start: 2018
  13. ATORVASTATIN [Concomitant]
     Active Substance: ATORVASTATIN
     Indication: Coronary artery disease
     Route: 048
     Dates: start: 2018
  14. ASPIRIN [Concomitant]
     Active Substance: ASPIRIN
     Indication: Coronary artery disease
     Route: 048
     Dates: start: 2018
  15. ACETAMINOPHEN [Concomitant]
     Active Substance: ACETAMINOPHEN
     Indication: Spinal fracture
     Dates: start: 20210816
  16. TRAMADOL [Concomitant]
     Active Substance: TRAMADOL
     Indication: Lumbar vertebral fracture
     Dates: start: 20210920
  17. MEPREDNISONE [Concomitant]
     Active Substance: MEPREDNISONE
     Indication: Crohn^s disease
     Route: 048
     Dates: start: 20210824, end: 20211213
  18. MEPREDNISONE [Concomitant]
     Active Substance: MEPREDNISONE
     Route: 048
     Dates: start: 20210719, end: 20210823
  19. MEPREDNISONE [Concomitant]
     Active Substance: MEPREDNISONE
     Route: 048
     Dates: start: 20211214, end: 20220220
  20. MEPREDNISONE [Concomitant]
     Active Substance: MEPREDNISONE
     Route: 048
     Dates: start: 20220221, end: 20220308
  21. MEPREDNISONE [Concomitant]
     Active Substance: MEPREDNISONE
     Route: 048
     Dates: start: 20220309
  22. LOPERAMIDE [Concomitant]
     Active Substance: LOPERAMIDE
     Indication: Crohn^s disease
     Route: 048
     Dates: start: 20211220
  23. CLONAZEPAM [Concomitant]
     Active Substance: CLONAZEPAM
     Indication: Insomnia
     Route: 048
     Dates: start: 20211111
  24. TERIPARATIDE [Concomitant]
     Active Substance: TERIPARATIDE
     Indication: Osteopenia
     Route: 058
     Dates: start: 20220207

REACTIONS (9)
  - Headache [Unknown]
  - Clostridium difficile infection [Unknown]
  - Ventricular extrasystoles [Unknown]
  - Blood glucose fluctuation [Unknown]
  - Neck pain [Unknown]
  - Crohn^s disease [Recovered/Resolved]
  - Drug ineffective [Unknown]
  - Gastroenteritis [Unknown]
  - Back pain [Unknown]

NARRATIVE: CASE EVENT DATE: 20220301
